FAERS Safety Report 20943000 (Version 1)
Quarter: 2022Q2

REPORT INFORMATION
  Report Type: Report from Study
  Country: US (occurrence: US)
  Receive Date: 20220610
  Receipt Date: 20220610
  Transmission Date: 20220720
  Serious: Yes (Other)
  Sender: FDA-Public Use
  Company Number: US-SUN PHARMACEUTICAL INDUSTRIES LTD-2022R1-340052

PATIENT

DRUGS (1)
  1. ASPIRIN [Suspect]
     Active Substance: ASPIRIN
     Indication: Thrombosis prophylaxis
     Dosage: UNK
     Route: 065

REACTIONS (2)
  - Gastrointestinal haemorrhage [Unknown]
  - Gastritis [Unknown]
